FAERS Safety Report 5948448-8 (Version None)
Quarter: 2008Q4

REPORT INFORMATION
  Report Type: 
  Country: None (occurrence: None)
  Receive Date: 20081111
  Receipt Date: 20081029
  Transmission Date: 20090506
  Serious: Yes (Hospitalization)
  Sender: FDA-Public Use
  Company Number: JP-ASTRAZENECA-2008AP08186

PATIENT
  Age: 17157 Day
  Sex: Male

DRUGS (10)
  1. SEROQUEL [Suspect]
     Indication: DISINHIBITION
     Route: 048
     Dates: start: 20080913, end: 20081010
  2. SEROQUEL [Suspect]
     Indication: PORIOMANIA
     Route: 048
     Dates: start: 20080913, end: 20081010
  3. SEROQUEL [Suspect]
     Indication: RESTLESSNESS
     Route: 048
     Dates: start: 20080913, end: 20081010
  4. RISPERDAL [Suspect]
     Indication: INSOMNIA
     Route: 048
     Dates: start: 20080804, end: 20081021
  5. RISPERDAL [Suspect]
     Indication: RESTLESSNESS
     Route: 048
     Dates: start: 20080804, end: 20081021
  6. TEGRETOL [Suspect]
     Indication: RESTLESSNESS
     Route: 048
     Dates: start: 20080906, end: 20080930
  7. PROGRAF [Suspect]
     Indication: ACCIDENTAL EXPOSURE
     Route: 048
     Dates: start: 20080928, end: 20080928
  8. DORAL [Suspect]
     Indication: INSOMNIA
     Dates: start: 20080929, end: 20081027
  9. ROHYPNOL [Concomitant]
     Indication: INSOMNIA
     Route: 048
     Dates: start: 20080804
  10. MAGMITT [Concomitant]
     Indication: CONSTIPATION
     Route: 048
     Dates: start: 20080918, end: 20081021

REACTIONS (2)
  - ERYTHEMA MULTIFORME [None]
  - HEPATIC FUNCTION ABNORMAL [None]
